FAERS Safety Report 9030570 (Version 1)
Quarter: 2013Q1

REPORT INFORMATION
  Report Type: Spontaneous
  Country: US (occurrence: US)
  Receive Date: 20130122
  Receipt Date: 20130122
  Transmission Date: 20140127
  Serious: No
  Sender: FDA-Public Use
  Company Number: US-MYLANLABS-2012S1019664

PATIENT
  Age: 80 Year
  Sex: Female
  Weight: 61.69 kg

DRUGS (3)
  1. FENOFIBRATE [Suspect]
     Indication: BLOOD CHOLESTEROL
     Route: 048
     Dates: start: 20120910, end: 20120912
  2. FENOFIBRATE [Suspect]
     Indication: BLOOD CHOLESTEROL
     Route: 048
     Dates: start: 20120913, end: 20120914
  3. METFORMIN [Concomitant]
     Indication: DIABETES MELLITUS
     Route: 048

REACTIONS (2)
  - Influenza like illness [Recovering/Resolving]
  - Heart rate increased [Not Recovered/Not Resolved]
